FAERS Safety Report 7471723-5 (Version None)
Quarter: 2011Q2

REPORT INFORMATION
  Report Type: 
  Country: None (occurrence: None)
  Receive Date: 20110502
  Receipt Date: 20110419
  Transmission Date: 20111010
  Serious: Yes (Hospitalization)
  Sender: FDA-Public Use
  Company Number: 1000020282

PATIENT
  Age: 75 Year
  Sex: Male

DRUGS (5)
  1. DONEPEZIL (DONEPEZIL) (DONEPEZIL) [Concomitant]
  2. TICLOPIDINE(TICLOPIDINE)(TICLOPIDINE) [Concomitant]
  3. CITALOPRAM HYDROBROMIDE [Suspect]
     Indication: DEPRESSION
     Dosage: 20 MG (20 MG, 1 IN 1 D), ORAL
     Route: 048
     Dates: start: 20040601, end: 20051201
  4. CIMETIDINE [Suspect]
     Indication: GASTRIC HAEMORRHAGE
     Dosage: 150 MG (150 MG, 1 IN 1 D),ORAL
     Route: 048
     Dates: start: 20050501, end: 20051201
  5. QUETIAPINE (QUETIAPINE)(QUETIAPINE) [Concomitant]

REACTIONS (4)
  - SEROTONIN SYNDROME [None]
  - DRUG INTERACTION [None]
  - BLOOD GLUCOSE INCREASED [None]
  - HYPERTENSION [None]
